FAERS Safety Report 8260052-8 (Version None)
Quarter: 2012Q2

REPORT INFORMATION
  Report Type: 
  Country: None (occurrence: None)
  Receive Date: 20120404
  Receipt Date: 20120402
  Transmission Date: 20120825
  Serious: No
  Sender: FDA-Public Use
  Company Number: US-BAYER-2012-032670

PATIENT
  Age: 38 Year
  Sex: Female

DRUGS (1)
  1. MAGNEVIST [Suspect]
     Indication: NUCLEAR MAGNETIC RESONANCE IMAGING BRAIN
     Dosage: 15 CC, ONCE
     Route: 042
     Dates: start: 20120330, end: 20120330

REACTIONS (2)
  - NAUSEA [None]
  - RETCHING [None]
